FAERS Safety Report 7668962-7 (Version None)
Quarter: 2011Q3

REPORT INFORMATION
  Report Type: 
  Country: None (occurrence: None)
  Receive Date: 20110808
  Receipt Date: 20110729
  Transmission Date: 20111222
  Serious: Yes (Hospitalization)
  Sender: FDA-Public Use
  Company Number: JP-GLAXOSMITHKLINE-B0711972A

PATIENT
  Sex: Male
  Weight: 60 kg

DRUGS (13)
  1. FIRSTCIN [Concomitant]
     Dosage: 2G PER DAY
     Route: 042
     Dates: start: 20100727, end: 20100730
  2. ALKERAN [Suspect]
     Indication: STEM CELL TRANSPLANT
     Dosage: 150MG PER DAY
     Route: 042
     Dates: start: 20100726, end: 20100727
  3. FENTANYL [Concomitant]
     Dosage: 8.4MG THREE TIMES PER DAY
     Route: 062
     Dates: start: 20100515
  4. MAGMITT [Concomitant]
     Dosage: 990MG PER DAY
     Route: 048
     Dates: start: 20100524
  5. ALDACTONE [Concomitant]
     Dosage: 25MG PER DAY
     Route: 048
     Dates: start: 20100318
  6. PANTOSIN [Concomitant]
     Dosage: 600MG PER DAY
     Route: 048
     Dates: start: 20100524, end: 20100912
  7. GRANISETRON [Concomitant]
     Dosage: 6ML PER DAY
     Route: 042
     Dates: start: 20100726, end: 20100727
  8. LANSOPRAZOLE [Concomitant]
     Dosage: 15MG PER DAY
     Route: 048
     Dates: start: 20100325
  9. VALTREX [Concomitant]
     Dosage: 500MG PER DAY
     Route: 048
     Dates: start: 20100320
  10. FUROSEMIDE [Concomitant]
     Dosage: 40MG PER DAY
     Route: 048
     Dates: start: 20100415
  11. METHYCOBAL [Concomitant]
     Dosage: 1500MCG PER DAY
     Route: 048
     Dates: start: 20100623, end: 20100804
  12. FUNGUARD [Concomitant]
     Dosage: 50MG PER DAY
     Route: 042
     Dates: start: 20100725, end: 20100816
  13. OXINORM [Concomitant]
     Route: 048
     Dates: start: 20100529

REACTIONS (1)
  - FEBRILE NEUTROPENIA [None]
